FAERS Safety Report 5417466-0 (Version None)
Quarter: 2007Q3

REPORT INFORMATION
  Report Type: 
  Country: None (occurrence: None)
  Receive Date: 20070816
  Receipt Date: 20070808
  Transmission Date: 20080115
  Serious: Yes (Other)
  Sender: FDA-Public Use
  Company Number: US-ABBOTT-07P-163-0377562-00

PATIENT
  Sex: Female
  Weight: 47.67 kg

DRUGS (3)
  1. HUMIRA [Suspect]
     Indication: PSORIATIC ARTHROPATHY
     Route: 058
     Dates: start: 20050101, end: 20060401
  2. HUMIRA [Suspect]
     Dates: start: 20060901, end: 20061001
  3. HUMIRA [Suspect]
     Dates: start: 20070601

REACTIONS (3)
  - ARTHRALGIA [None]
  - INTRACRANIAL ANEURYSM [None]
  - PSORIATIC ARTHROPATHY [None]
